FAERS Safety Report 9462370 (Version 1)
Quarter: 2013Q3

REPORT INFORMATION
  Report Type: Spontaneous
  Country: US (occurrence: None)
  Receive Date: 20130815
  Receipt Date: 20130815
  Transmission Date: 20140515
  Serious: Yes (Hospitalization)
  Sender: FDA-Public Use
  Company Number: None

PATIENT
  Age: 68 Year
  Sex: Male
  Weight: 71.7 kg

DRUGS (6)
  1. RITUXAN [Suspect]
     Indication: CHRONIC LYMPHOCYTIC LEUKAEMIA
     Route: 042
     Dates: start: 20130701
  2. CYTOXAN [Concomitant]
  3. MOTRIN [Concomitant]
  4. SOLUCORTEF [Concomitant]
  5. BENADRYL [Concomitant]
  6. ACETAMINOPHEN [Concomitant]

REACTIONS (2)
  - Pyrexia [None]
  - Chills [None]
